FAERS Safety Report 12383794 (Version 4)
Quarter: 2016Q2

REPORT INFORMATION
  Report Type: Spontaneous
  Country: JP (occurrence: JP)
  Receive Date: 20160519
  Receipt Date: 20160627
  Transmission Date: 20160815
  Serious: Yes (Other)
  Sender: FDA-Public Use
  Company Number: JP-ORION CORPORATION ORION PHARMA-ENTC2016-0243

PATIENT
  Age: 81 Year
  Sex: Female

DRUGS (7)
  1. STALEVO [Suspect]
     Active Substance: CARBIDOPA\ENTACAPONE\LEVODOPA
     Indication: PARKINSON^S DISEASE
     Dosage: STRENGTH: L100, AT 1130 HOURS AND 1600 HOURS
     Route: 048
     Dates: start: 20150821
  2. MENESIT [Concomitant]
     Active Substance: CARBIDOPA\LEVODOPA
     Dosage: 2030 HOURS
     Route: 065
     Dates: start: 20160502
  3. STALEVO [Suspect]
     Active Substance: CARBIDOPA\ENTACAPONE\LEVODOPA
     Dosage: 700 HOURS, 1130 HOURS AND 1600 HOURS
     Route: 048
     Dates: start: 20160502, end: 20160503
  4. MENESIT [Concomitant]
     Active Substance: CARBIDOPA\LEVODOPA
     Dosage: 700 HOURS, 1130 HOURS, 1600 HOURS, AND 2030 HOURS
     Route: 065
     Dates: end: 20160502
  5. STALEVO [Suspect]
     Active Substance: CARBIDOPA\ENTACAPONE\LEVODOPA
     Route: 048
     Dates: start: 20160513, end: 20160515
  6. AMLODIPINE [Concomitant]
     Active Substance: AMLODIPINE BESYLATE
     Route: 065
  7. SYMMETREL [Concomitant]
     Active Substance: AMANTADINE HYDROCHLORIDE
     Route: 065

REACTIONS (3)
  - Decreased appetite [Unknown]
  - Nausea [Unknown]
  - Eczema [Unknown]

NARRATIVE: CASE EVENT DATE: 2015
